FAERS Safety Report 10704392 (Version 1)
Quarter: 2014Q4

REPORT INFORMATION
  Report Type: Report from Study
  Country: US (occurrence: None)
  Receive Date: 20141224
  Receipt Date: 20141224
  Transmission Date: 20150529
  Serious: No
  Sender: FDA-Public Use
  Company Number: CABO-14004807

PATIENT
  Age: 71 Year
  Sex: Female
  Weight: 89.6 kg

DRUGS (9)
  1. NORVASC [Concomitant]
     Active Substance: AMLODIPINE BESYLATE
  2. METAMUCIL THERAPY FOR REGULARITY [Concomitant]
     Active Substance: PSYLLIUM HUSK
  3. MIRALAX (MACROGOL) [Concomitant]
  4. CO Q 10 (UBIDECARENONE) [Concomitant]
  5. ADVIL [Concomitant]
     Active Substance: IBUPROFEN
  6. MAGNESIUM [Concomitant]
     Active Substance: MAGNESIUM
  7. SYNTHROID [Concomitant]
     Active Substance: LEVOTHYROXINE SODIUM
  8. CLONIDINE. [Concomitant]
     Active Substance: CLONIDINE
  9. COMETRIQ [Suspect]
     Active Substance: CABOZANTINIB S-MALATE
     Indication: THYROID CANCER
     Route: 048
     Dates: start: 20140911

REACTIONS (16)
  - Dry mouth [None]
  - Nausea [None]
  - Hyperkeratosis [None]
  - Blood pressure increased [None]
  - Gingival pain [None]
  - Muscle spasms [None]
  - Constipation [None]
  - Fatigue [None]
  - Dysgeusia [None]
  - Erythema [None]
  - Neuropathy peripheral [None]
  - Feeling abnormal [None]
  - Glossodynia [None]
  - Nasal dryness [None]
  - Oral pain [None]
  - Pain in extremity [None]

NARRATIVE: CASE EVENT DATE: 2014
